FAERS Safety Report 15643000 (Version 1)
Quarter: 2018Q4

REPORT INFORMATION
  Report Type: Spontaneous
  Country: US (occurrence: US)
  Receive Date: 20181121
  Receipt Date: 20181121
  Transmission Date: 20190205
  Serious: Yes (Hospitalization)
  Sender: FDA-Public Use
  Company Number: US-BAYER-2018-213338

PATIENT
  Age: 54 Year
  Sex: Female

DRUGS (8)
  1. SPIRONOLACTONE. [Concomitant]
     Active Substance: SPIRONOLACTONE
  2. BUMETANIDE. [Concomitant]
     Active Substance: BUMETANIDE
  3. ACETYLSALICYLIC ACID (} 100 MG) [Suspect]
     Active Substance: ASPIRIN
  4. METOPROLOL. [Concomitant]
     Active Substance: METOPROLOL
  5. CLOPIDOGREL [Interacting]
     Active Substance: CLOPIDOGREL BISULFATE
  6. ATORVASTATIN [Suspect]
     Active Substance: ATORVASTATIN
     Dosage: 80 MG, QD
  7. MONTELUKAST [Concomitant]
     Active Substance: MONTELUKAST SODIUM
  8. POTASSIUM CHLORIDE. [Concomitant]
     Active Substance: POTASSIUM CHLORIDE

REACTIONS (5)
  - Embolic stroke [Recovering/Resolving]
  - Labelled drug-drug interaction medication error [None]
  - Respiratory failure [None]
  - Macroglossia [Recovering/Resolving]
  - Haemorrhagic cerebral infarction [None]
